FAERS Safety Report 10169829 (Version 1)
Quarter: 2014Q2

REPORT INFORMATION
  Report Type: Spontaneous
  Country: US (occurrence: US)
  Receive Date: 20140513
  Receipt Date: 20140513
  Transmission Date: 20141212
  Serious: No
  Sender: FDA-Public Use
  Company Number: US-BAYER-2014-067053

PATIENT
  Age: 84 Year
  Sex: Female
  Weight: 84.81 kg

DRUGS (1)
  1. ALEVE CAPLET [Suspect]
     Indication: ARTHRALGIA
     Dosage: 1 DF, QD WITH FOOD
     Route: 048
     Dates: start: 2013

REACTIONS (4)
  - Therapeutic response changed [None]
  - Drug ineffective [None]
  - Incorrect drug administration duration [None]
  - Constipation [Not Recovered/Not Resolved]
